FAERS Safety Report 8310789-7 (Version None)
Quarter: 2012Q2

REPORT INFORMATION
  Report Type: 
  Country: None (occurrence: None)
  Receive Date: 20120425
  Receipt Date: 20100308
  Transmission Date: 20120825
  Serious: Yes (Death, Hospitalization)
  Sender: FDA-Public Use
  Company Number: FR-ROCHE-689927

PATIENT
  Sex: Female

DRUGS (8)
  1. CYCLOPHOSPHAMIDE [Concomitant]
  2. FLUOROURACIL [Concomitant]
  3. TAMOXIFEN CITRATE [Concomitant]
  4. FEMARA [Concomitant]
     Indication: METASTASES TO LIVER
  5. XELODA [Suspect]
     Indication: BREAST CANCER
     Route: 048
     Dates: start: 20091226, end: 20100108
  6. FASLODEX [Concomitant]
  7. EPIRUBICIN [Concomitant]
  8. ARIMIDEX [Concomitant]

REACTIONS (5)
  - VOMITING [None]
  - SKIN LESION [None]
  - SHOCK [None]
  - FEBRILE BONE MARROW APLASIA [None]
  - PYREXIA [None]
